FAERS Safety Report 6382858-2 (Version None)
Quarter: 2009Q3

REPORT INFORMATION
  Report Type: 
  Country: None (occurrence: None)
  Receive Date: 20090928
  Receipt Date: 20090928
  Transmission Date: 20100115
  Serious: No
  Sender: FDA-Public Use
  Company Number: None

PATIENT
  Sex: Female

DRUGS (1)
  1. ZOLOFT [Suspect]
     Indication: DEPRESSION
     Dosage: 50 TO 100MG DAILY PO
     Route: 048
     Dates: start: 20060901, end: 20090814

REACTIONS (3)
  - DYSKINESIA [None]
  - EYE MOVEMENT DISORDER [None]
  - MOVEMENT DISORDER [None]
